FAERS Safety Report 16787881 (Version 1)
Quarter: 2019Q3

REPORT INFORMATION
  Report Type: Spontaneous
  Country: US (occurrence: US)
  Receive Date: 20190909
  Receipt Date: 20190909
  Transmission Date: 20191005
  Serious: Yes (Life-Threatening, Hospitalization, Other)
  Sender: FDA-Public Use
  Company Number: US-BAUSCH-BL-2019-024765

PATIENT
  Age: 14 Year
  Sex: Male

DRUGS (12)
  1. LORAZEPAM. [Suspect]
     Active Substance: LORAZEPAM
     Dosage: HOD 9
     Route: 065
  2. LORAZEPAM. [Suspect]
     Active Substance: LORAZEPAM
     Dosage: HOD 10
     Route: 065
  3. LORAZEPAM. [Suspect]
     Active Substance: LORAZEPAM
     Indication: CATATONIA
     Dosage: HOD 7
     Route: 065
  4. OLANZAPINE. [Suspect]
     Active Substance: OLANZAPINE
     Dosage: HOD 2 TO 5
     Route: 065
  5. LORAZEPAM. [Suspect]
     Active Substance: LORAZEPAM
     Dosage: HOD 5 AND 6
     Route: 065
  6. OLANZAPINE. [Suspect]
     Active Substance: OLANZAPINE
     Indication: PSYCHOTIC SYMPTOM
     Dosage: HOD 8 TO 11
     Route: 065
  7. LORAZEPAM. [Suspect]
     Active Substance: LORAZEPAM
     Dosage: HOD 1
     Route: 065
  8. LORAZEPAM. [Suspect]
     Active Substance: LORAZEPAM
     Dosage: HOD 11
     Route: 065
  9. LORAZEPAM. [Suspect]
     Active Substance: LORAZEPAM
     Dosage: HOD 4
     Route: 065
  10. LORAZEPAM. [Suspect]
     Active Substance: LORAZEPAM
     Dosage: HOD 2 AND 3
     Route: 065
  11. LORAZEPAM. [Suspect]
     Active Substance: LORAZEPAM
     Dosage: HOD 8
     Route: 065
  12. OLANZAPINE. [Suspect]
     Active Substance: OLANZAPINE
     Indication: AFFECTIVE DISORDER
     Dosage: HOD 6 AND 7
     Route: 065

REACTIONS (3)
  - Hypoxia [Recovered/Resolved]
  - Withdrawal catatonia [Recovered/Resolved]
  - Withdrawal syndrome [Recovered/Resolved]
